FAERS Safety Report 8224428-7 (Version None)
Quarter: 2012Q1

REPORT INFORMATION
  Report Type: 
  Country: None (occurrence: None)
  Receive Date: 20120320
  Receipt Date: 20120320
  Transmission Date: 20120608
  Serious: Yes (Hospitalization)
  Sender: FDA-Public Use
  Company Number: None

PATIENT
  Sex: Female
  Weight: 68.04 kg

DRUGS (2)
  1. CARBOPLATIN [Suspect]
     Dosage: 585 MG
     Dates: end: 20120302
  2. TAXOL [Suspect]
     Dosage: 252 MG
     Dates: end: 20120309

REACTIONS (5)
  - ARTHROPOD BITE [None]
  - NEUTROPENIA [None]
  - SEPSIS [None]
  - ERYTHEMA [None]
  - JOINT EFFUSION [None]
